FAERS Safety Report 24075521 (Version 1)
Quarter: 2024Q3

REPORT INFORMATION
  Report Type: Spontaneous
  Country: FR (occurrence: None)
  Receive Date: 20240710
  Receipt Date: 20240710
  Transmission Date: 20241016
  Serious: Yes (Death, Hospitalization, Other)
  Sender: ASTRAZENECA
  Company Number: 2024A157062

PATIENT
  Age: 70 Year
  Sex: Male

DRUGS (1)
  1. DURVALUMAB [Suspect]
     Active Substance: DURVALUMAB
     Indication: Non-small cell lung cancer

REACTIONS (4)
  - Malignant neoplasm progression [Fatal]
  - Lung abscess [Unknown]
  - Febrile neutropenia [Unknown]
  - Anaemia [Unknown]
